FAERS Safety Report 7088421-2 (Version None)
Quarter: 2010Q4

REPORT INFORMATION
  Report Type: 
  Country: None (occurrence: None)
  Receive Date: 20101029
  Receipt Date: 20101014
  Transmission Date: 20110411
  Serious: Yes (Other)
  Sender: FDA-Public Use
  Company Number: US-003935

PATIENT
  Age: 30 Year
  Sex: Female

DRUGS (2)
  1. MENOPUR [Suspect]
     Indication: OVULATION INDUCTION
  2. GONAL-F [Suspect]
     Indication: OVULATION INDUCTION

REACTIONS (2)
  - INTRA-UTERINE DEATH [None]
  - MATERNAL DRUGS AFFECTING FOETUS [None]
